FAERS Safety Report 7831987-2 (Version None)
Quarter: 2011Q4

REPORT INFORMATION
  Report Type: 
  Country: None (occurrence: None)
  Receive Date: 20111021
  Receipt Date: 20111010
  Transmission Date: 20120403
  Serious: Yes (Hospitalization)
  Sender: FDA-Public Use
  Company Number: GB-ELI_LILLY_AND_COMPANY-GB201106008761

PATIENT
  Sex: Female
  Weight: 62 kg

DRUGS (8)
  1. FORTEO [Suspect]
     Indication: OSTEOPOROSIS
     Dosage: 20 UG, QD
     Route: 058
     Dates: start: 20110201, end: 20110617
  2. FOLIC ACID [Concomitant]
     Dosage: 5 MG, QD
  3. CALCICHEW-D3 FORTE [Concomitant]
     Dosage: 1 DF, BID
  4. ACETAMINOPHEN AND CODEINE PHOSPHATE [Concomitant]
     Dosage: 1 DF, UNK
  5. LANSOPRAZOLE [Concomitant]
     Dosage: 30 MG, QD
  6. MEBEVERINE [Concomitant]
  7. FORTEO [Suspect]
     Dosage: 20 UG, QD
     Route: 058
     Dates: start: 20110701
  8. CLOPIDOGREL [Concomitant]
     Dosage: 75 MG, QD

REACTIONS (2)
  - URINARY TRACT INFECTION [None]
  - RENAL IMPAIRMENT [None]
